FAERS Safety Report 14207381 (Version 1)
Quarter: 2017Q4

REPORT INFORMATION
  Report Type: Spontaneous
  Country: US (occurrence: US)
  Receive Date: 20171121
  Receipt Date: 20171121
  Transmission Date: 20180321
  Serious: No
  Sender: FDA-Public Use
  Company Number: US-JNJFOC-20171010764

PATIENT
  Age: 30 Year
  Sex: Male
  Weight: 95.26 kg

DRUGS (2)
  1. INVEGA SUSTENNA [Suspect]
     Active Substance: PALIPERIDONE PALMITATE
     Indication: SCHIZOPHRENIA
     Route: 030
  2. GENERIC PALIPERIDONE [Concomitant]
     Active Substance: PALIPERIDONE
     Indication: PRODUCT USED FOR UNKNOWN INDICATION
     Route: 048

REACTIONS (6)
  - Syringe issue [Unknown]
  - Sedation [Unknown]
  - Sluggishness [Unknown]
  - Dyspnoea [Unknown]
  - Complication associated with device [Unknown]
  - Impaired work ability [Unknown]

NARRATIVE: CASE EVENT DATE: 20171005
